FAERS Safety Report 7240926-7 (Version None)
Quarter: 2011Q1

REPORT INFORMATION
  Report Type: 
  Country: None (occurrence: None)
  Receive Date: 20110124
  Receipt Date: 20110117
  Transmission Date: 20110831
  Serious: Yes (Death, Hospitalization, Other)
  Sender: FDA-Public Use
  Company Number: PHHY2010JP29157

PATIENT
  Sex: Male

DRUGS (17)
  1. AFINITOR [Suspect]
     Indication: RENAL CELL CARCINOMA
     Dosage: 10 MG DAILY
     Route: 048
     Dates: start: 20100326, end: 20100417
  2. GEMCITABINE HYDROCHLORIDE [Concomitant]
     Indication: METASTATIC RENAL CELL CARCINOMA
     Dosage: 800 MG, UNK
     Route: 042
     Dates: start: 20100115, end: 20100226
  3. OXYCONTIN [Concomitant]
     Indication: METASTATIC RENAL CELL CARCINOMA
     Dosage: 400 MG, UNK
     Route: 048
     Dates: start: 20091009
  4. CARBOPLATIN [Concomitant]
     Indication: METASTATIC RENAL CELL CARCINOMA
     Dosage: 150 MG, UNK
     Route: 042
     Dates: start: 20100115, end: 20100212
  5. MAGLAX [Concomitant]
     Dosage: 1980 MG, UNK
     Route: 048
     Dates: start: 20090911
  6. RESLIN [Concomitant]
     Dosage: 50 MG, UNK
     Route: 048
     Dates: start: 20100113
  7. ZOLEDRONIC ACID [Concomitant]
     Indication: METASTATIC RENAL CELL CARCINOMA
     Dosage: 4 MG, UNK
     Route: 042
     Dates: start: 20091005
  8. DECADRON [Concomitant]
     Indication: METASTATIC RENAL CELL CARCINOMA
     Dosage: 1 MG, UNK
     Route: 048
     Dates: start: 20091126
  9. GABAPENTIN [Concomitant]
     Indication: METASTATIC RENAL CELL CARCINOMA
     Dosage: 600 MG, UNK
     Route: 048
     Dates: start: 20091212
  10. FERROUS CITRATE [Concomitant]
     Indication: METASTATIC RENAL CELL CARCINOMA
     Dosage: 2 DF, UNK
     Route: 048
     Dates: start: 20100204
  11. AMOBAN [Concomitant]
     Dosage: 7.5 MG, UNK
     Route: 048
     Dates: start: 20100120
  12. GASMOTIN [Concomitant]
     Dosage: 3 DF, UNK
     Route: 048
     Dates: start: 20100217
  13. SUNITINIB MALATE [Concomitant]
     Indication: METASTATIC RENAL CELL CARCINOMA
     Dosage: 50 MG
     Route: 048
     Dates: start: 20091005, end: 20091102
  14. GASTER D [Concomitant]
     Dosage: 20 MG, UNK
     Route: 048
     Dates: start: 20091014
  15. SEROQUEL [Concomitant]
     Dosage: 50 MG, UNK
     Route: 048
  16. AFINITOR [Suspect]
     Indication: METASTATIC RENAL CELL CARCINOMA
  17. LASIX [Concomitant]
     Indication: METASTATIC RENAL CELL CARCINOMA
     Dosage: 40 MG, UNK
     Route: 048
     Dates: start: 20091217

REACTIONS (13)
  - RESPIRATORY DISORDER [None]
  - BRONCHITIS [None]
  - PLEURAL EFFUSION [None]
  - ASTHENIA [None]
  - INTERSTITIAL LUNG DISEASE [None]
  - PULMONARY EMBOLISM [None]
  - NEOPLASM MALIGNANT [None]
  - METASTASES TO LUNG [None]
  - RIGHT VENTRICULAR HYPERTROPHY [None]
  - DILATATION VENTRICULAR [None]
  - PNEUMONIA BACTERIAL [None]
  - LUNG DISORDER [None]
  - CANCER PAIN [None]
